FAERS Safety Report 12852954 (Version 2)
Quarter: 2017Q1

REPORT INFORMATION
  Report Type: Spontaneous
  Country: US (occurrence: US)
  Receive Date: 20161017
  Receipt Date: 20170104
  Transmission Date: 20170428
  Serious: No
  Sender: FDA-Public Use
  Company Number: US-JAZZ-2016-US-014066

PATIENT
  Sex: Female

DRUGS (31)
  1. KETAMINE HCL [Concomitant]
     Active Substance: KETAMINE HYDROCHLORIDE
  2. OLIVE LEAF EXTRACT [Concomitant]
  3. VITAMIN B12 [Concomitant]
     Active Substance: CYANOCOBALAMIN
  4. XYREM [Suspect]
     Active Substance: SODIUM OXYBATE
     Indication: NARCOLEPSY
     Dosage: 3 G, BID
     Route: 048
     Dates: start: 201302, end: 201303
  5. MELOXICAM. [Concomitant]
     Active Substance: MELOXICAM
  6. VITAMIN B6 [Concomitant]
     Active Substance: PYRIDOXINE HYDROCHLORIDE
  7. FLONASE [Concomitant]
     Active Substance: FLUTICASONE PROPIONATE
  8. TOPIRAMATE. [Concomitant]
     Active Substance: TOPIRAMATE
  9. TEMAZEPAM. [Concomitant]
     Active Substance: TEMAZEPAM
  10. DECARA [Concomitant]
  11. OMEGA 3 FISH OIL [Concomitant]
     Active Substance: FISH OIL\OMEGA-3 FATTY ACIDS
  12. RITALIN [Concomitant]
     Active Substance: METHYLPHENIDATE HYDROCHLORIDE
  13. CLONAZEPAM. [Concomitant]
     Active Substance: CLONAZEPAM
  14. XYREM [Suspect]
     Active Substance: SODIUM OXYBATE
     Dosage: DOSE ADJUSTMENTS
     Route: 048
     Dates: start: 201303, end: 201510
  15. KLONOPIN [Suspect]
     Active Substance: CLONAZEPAM
     Indication: PRODUCT USED FOR UNKNOWN INDICATION
     Dosage: UNK
  16. NALTREXONE HCL [Concomitant]
     Active Substance: NALTREXONE HYDROCHLORIDE
  17. SUBOXONE [Concomitant]
     Active Substance: BUPRENORPHINE HYDROCHLORIDE\NALOXONE HYDROCHLORIDE
  18. DEPLIN [Concomitant]
     Active Substance: LEVOMEFOLATE CALCIUM
  19. VITAMIN D3 [Concomitant]
     Active Substance: CHOLECALCIFEROL
  20. BACLOFEN. [Concomitant]
     Active Substance: BACLOFEN
  21. DEXTROAMPHETAMINE. [Concomitant]
     Active Substance: DEXTROAMPHETAMINE
  22. ZINC CHELATE [Concomitant]
  23. PRISTIQ EXTENDED-RELEASE [Concomitant]
     Active Substance: DESVENLAFAXINE SUCCINATE
  24. TYLENOL PM, EXTRA STRENGTH [Concomitant]
  25. XYREM [Suspect]
     Active Substance: SODIUM OXYBATE
     Dosage: 4.5 G, BID
     Route: 048
     Dates: start: 201510
  26. VITAMIN B COMPLEX [Concomitant]
     Active Substance: CYANOCOBALAMIN\DEXPANTHENOL\NIACINAMIDE\PYRIDOXINE HYDROCHLORIDE\RIBOFLAVIN 5^-PHOSPHATE SODIUM\THIAMINE HYDROCHLORIDE\VITAMIN B COMPLEX
  27. TIZANIDINE HCL [Concomitant]
     Active Substance: TIZANIDINE HYDROCHLORIDE
  28. BACLOFEN. [Concomitant]
     Active Substance: BACLOFEN
  29. NUVIGIL [Concomitant]
     Active Substance: ARMODAFINIL
  30. ADVIL [Concomitant]
     Active Substance: IBUPROFEN
  31. BUPRENORPHINE. [Concomitant]
     Active Substance: BUPRENORPHINE

REACTIONS (16)
  - Initial insomnia [Not Recovered/Not Resolved]
  - Head injury [Unknown]
  - Drug ineffective [Unknown]
  - Somnolence [Unknown]
  - Sleep paralysis [Recovered/Resolved]
  - Nightmare [Not Recovered/Not Resolved]
  - Pre-existing condition improved [Unknown]
  - Somnambulism [Unknown]
  - Wrong technique in product usage process [Unknown]
  - Syncope [Recovered/Resolved]
  - Anxiety [Not Recovered/Not Resolved]
  - Sleep attacks [Recovered/Resolved]
  - Crying [Not Recovered/Not Resolved]
  - Therapeutic response unexpected [Unknown]
  - Vitamin B12 decreased [Not Recovered/Not Resolved]
  - Vitamin D deficiency [Not Recovered/Not Resolved]

NARRATIVE: CASE EVENT DATE: 2016
